FAERS Safety Report 6568944-2 (Version None)
Quarter: 2010Q1

REPORT INFORMATION
  Report Type: 
  Country: None (occurrence: None)
  Receive Date: 20100128
  Receipt Date: 20100113
  Transmission Date: 20100710
  Serious: Yes (Death)
  Sender: FDA-Public Use
  Company Number: 2010AP000135

PATIENT
  Age: 28 Year
  Sex: Male

DRUGS (2)
  1. CITALOPRAM HYDROBROMIDE [Suspect]
  2. OXYCODONE HCL [Suspect]

REACTIONS (3)
  - ALCOHOL USE [None]
  - DRUG TOXICITY [None]
  - UNRESPONSIVE TO STIMULI [None]
